FAERS Safety Report 6805788-8 (Version None)
Quarter: 2010Q2

REPORT INFORMATION
  Report Type: 
  Country: None (occurrence: None)
  Receive Date: 20100628
  Receipt Date: 20100614
  Transmission Date: 20101027
  Serious: Yes (Hospitalization)
  Sender: FDA-Public Use
  Company Number: DE-MYLANLABS-2010S1007876

PATIENT
  Age: 89 Year
  Sex: Female
  Weight: 70 kg

DRUGS (8)
  1. SPIRONOLACTONE [Suspect]
     Indication: HYPERTENSION
     Route: 048
     Dates: start: 20090925, end: 20100320
  2. DIGITOXIN [Suspect]
     Indication: TACHYARRHYTHMIA
     Route: 048
     Dates: start: 20090821, end: 20100320
  3. RASILEZ /01763601/ [Suspect]
     Indication: HYPERTENSION
     Route: 048
     Dates: start: 20100223, end: 20100320
  4. EXFORGE [Suspect]
     Indication: HYPERTENSION
     Route: 048
     Dates: start: 20100223, end: 20100320
  5. BIKALM [Concomitant]
     Indication: SLEEP DISORDER
     Route: 048
  6. MIRTAZAPINE [Concomitant]
     Indication: DEPRESSION
     Route: 048
     Dates: start: 20090901
  7. METOPROLOL [Concomitant]
     Indication: HYPERTENSION
     Dosage: STATIONAR BELOC ZOK GLEICH 1X1TBL.
     Route: 048
     Dates: end: 20100324
  8. PANTOZOL [Concomitant]
     Indication: DYSPEPSIA
     Route: 048

REACTIONS (2)
  - HALLUCINATION [None]
  - HYPERKALAEMIA [None]
